FAERS Safety Report 4676538-9 (Version None)
Quarter: 2005Q2

REPORT INFORMATION
  Report Type: 
  Country: None (occurrence: None)
  Receive Date: 20050526
  Receipt Date: 20050411
  Transmission Date: 20051028
  Serious: Yes (Other)
  Sender: FDA-Public Use
  Company Number: 2005S1002112

PATIENT
  Age: 34 Year
  Sex: Female
  Weight: 89.3586 kg

DRUGS (9)
  1. FENTANYL [Suspect]
     Indication: BACK PAIN
     Dosage: 100 MCG; Q3D; TDER
     Route: 062
     Dates: start: 20050407, end: 20050408
  2. FENTANYL [Suspect]
     Indication: INTERVERTEBRAL DISC DISORDER
     Dosage: 100 MCG; Q3D; TDER
     Route: 062
     Dates: start: 20050407, end: 20050408
  3. PARACETAMOL/OXYCODONE HYDROCHLORIDE [Concomitant]
  4. OXCARBAZEPINE [Concomitant]
  5. ESCITALOPRAM OXALATE [Concomitant]
  6. RISPERIDONE [Concomitant]
  7. LANSOPRAZOLE [Concomitant]
  8. NICOTINIC ACID/LOVASTATIN [Concomitant]
  9. TIOTROPIUM BROMIDE [Concomitant]

REACTIONS (6)
  - CHEST DISCOMFORT [None]
  - DRUG EFFECT INCREASED [None]
  - GRAND MAL CONVULSION [None]
  - MUSCLE TWITCHING [None]
  - PETIT MAL EPILEPSY [None]
  - PHARMACEUTICAL PRODUCT COMPLAINT [None]
